FAERS Safety Report 6899446-1 (Version None)
Quarter: 2010Q3

REPORT INFORMATION
  Report Type: 
  Country: None (occurrence: None)
  Receive Date: 20100803
  Receipt Date: 20090826
  Transmission Date: 20110219
  Serious: No
  Sender: FDA-Public Use
  Company Number: US-PFIZER INC-2009187856

PATIENT
  Age: 83 Year
  Sex: Male
  Weight: 59 kg

DRUGS (6)
  1. NORVASC [Suspect]
     Indication: BLOOD PRESSURE ABNORMAL
     Dosage: 10 MG, 1X/DAY
  2. HYDROCHLOROTHIAZIDE [Concomitant]
     Indication: OEDEMA PERIPHERAL
     Dates: start: 20090101
  3. LIPITOR [Concomitant]
     Indication: BLOOD CHOLESTEROL ABNORMAL
     Dosage: UNK
  4. IBANDRONATE SODIUM [Concomitant]
     Indication: OSTEOPOROSIS
     Dosage: UNK
  5. TRIAMTERENE AND HYDROCHLOROTHIAZIDE [Concomitant]
  6. VIAGRA [Concomitant]

REACTIONS (2)
  - NOCTURIA [None]
  - OEDEMA PERIPHERAL [None]
